FAERS Safety Report 10006703 (Version 1)
Quarter: 2014Q1

REPORT INFORMATION
  Report Type: Spontaneous
  Country: US (occurrence: US)
  Receive Date: 20140313
  Receipt Date: 20140313
  Transmission Date: 20141002
  Serious: Yes (Hospitalization)
  Sender: FDA-Public Use
  Company Number: US-GILEAD-2012-0064114

PATIENT
  Age: 69 Year
  Sex: Female

DRUGS (1)
  1. LETAIRIS [Suspect]
     Indication: PRODUCT USED FOR UNKNOWN INDICATION
     Dosage: 5 MG, UNK
     Route: 048
     Dates: start: 20121010, end: 201210

REACTIONS (6)
  - Sinusitis [Unknown]
  - Cardiac failure congestive [Unknown]
  - Local swelling [Unknown]
  - Vomiting [Unknown]
  - Headache [Unknown]
  - Weight increased [Unknown]
